FAERS Safety Report 9516679 (Version 4)
Quarter: 2017Q3

REPORT INFORMATION
  Report Type: Spontaneous
  Country: GB (occurrence: GB)
  Receive Date: 20130911
  Receipt Date: 20170907
  Transmission Date: 20171128
  Serious: Yes (Death, Other)
  Sender: FDA-Public Use
  Company Number: GB-JNJFOC-20130902721

PATIENT

DRUGS (8)
  1. DOXORUBICIN HYDROCHLORIDE. [Suspect]
     Active Substance: DOXORUBICIN HYDROCHLORIDE
     Indication: MANTLE CELL LYMPHOMA
     Route: 042
  2. DOXORUBICIN [Suspect]
     Active Substance: DOXORUBICIN
     Indication: MANTLE CELL LYMPHOMA
     Route: 065
  3. BORTEZOMIB [Suspect]
     Active Substance: BORTEZOMIB
     Indication: MANTLE CELL LYMPHOMA
     Route: 065
  4. BORTEZOMIB [Suspect]
     Active Substance: BORTEZOMIB
     Indication: MANTLE CELL LYMPHOMA
     Dosage: ON DAYS 1 AND 8 OF STANDARD CHOP CHEMOTHERAPY
     Route: 065
  5. CYCLOPHOSPHAMIDE. [Suspect]
     Active Substance: CYCLOPHOSPHAMIDE
     Indication: MANTLE CELL LYMPHOMA
     Route: 065
  6. ACYCLOVIR. [Concomitant]
     Active Substance: ACYCLOVIR
     Indication: PROPHYLAXIS
     Route: 065
  7. VINCRISTINE [Suspect]
     Active Substance: VINCRISTINE
     Indication: MANTLE CELL LYMPHOMA
     Dosage: TO A MAXIMUM DOSE OF 2 MG
     Route: 065
  8. PREDNISOLONE. [Suspect]
     Active Substance: PREDNISOLONE
     Indication: MANTLE CELL LYMPHOMA
     Route: 065

REACTIONS (38)
  - Thrombocytopenia [Unknown]
  - Hypotension [Unknown]
  - Neuropathy peripheral [Unknown]
  - Mucosal inflammation [Unknown]
  - Leukopenia [Unknown]
  - Anaemia [Unknown]
  - Tinnitus [Unknown]
  - Hyperglycaemia [Unknown]
  - Peripheral motor neuropathy [Unknown]
  - Diarrhoea [Unknown]
  - Insomnia [Unknown]
  - Headache [Unknown]
  - Dizziness [Unknown]
  - Hypokalaemia [Unknown]
  - Lymphopenia [Unknown]
  - Infection [Unknown]
  - Alopecia [Unknown]
  - Decreased appetite [Unknown]
  - Fatigue [Unknown]
  - Pyrexia [Unknown]
  - Product use in unapproved indication [Unknown]
  - Toxicity to various agents [Fatal]
  - Vomiting [Unknown]
  - Constipation [Unknown]
  - Pain [Unknown]
  - Peripheral sensory neuropathy [Unknown]
  - Off label use [Unknown]
  - Gastrointestinal haemorrhage [Unknown]
  - Deep vein thrombosis [Unknown]
  - Jaundice [Unknown]
  - Febrile neutropenia [Unknown]
  - Neutropenia [Unknown]
  - Neutropenic sepsis [Unknown]
  - Pneumonia [Unknown]
  - Tumour lysis syndrome [Unknown]
  - Nausea [Unknown]
  - Herpes zoster [Unknown]
  - Acute respiratory distress syndrome [Unknown]
